FAERS Safety Report 8507919-0 (Version None)
Quarter: 2012Q3

REPORT INFORMATION
  Report Type: 
  Country: None (occurrence: None)
  Receive Date: 20120709
  Receipt Date: 20120709
  Transmission Date: 20120928
  Serious: No
  Sender: FDA-Public Use
  Company Number: None

PATIENT

DRUGS (1)
  1. ONDANSETRON [Suspect]
     Dosage: INJECTABLE INJECTION

REACTIONS (1)
  - PRODUCT STERILITY LACKING [None]
